FAERS Safety Report 4283445-2 (Version None)
Quarter: 2004Q1

REPORT INFORMATION
  Report Type: 
  Country: None (occurrence: None)
  Receive Date: 20040121
  Receipt Date: 20021223
  Transmission Date: 20041129
  Serious: Yes (Hospitalization)
  Sender: FDA-Public Use
  Company Number: A03200201603

PATIENT
  Age: 73 Year
  Sex: Male
  Weight: 102.8 kg

DRUGS (15)
  1. PLAVIX [Suspect]
     Indication: ARTERIOGRAM CORONARY
     Dosage: 75 MG QD - ORAL
     Route: 048
     Dates: start: 20021002
  2. PLAVIX [Suspect]
     Indication: CORONARY ANGIOPLASTY
     Dosage: 75 MG QD - ORAL
     Route: 048
     Dates: start: 20021002
  3. INTERGRILIN - EPTIFIBATIDE - UNKNOWN - UNIT DOSE : UNKNOWN [Suspect]
     Indication: ARTERIOGRAM CORONARY
     Dates: start: 20021002, end: 20021002
  4. INTERGRILIN - EPTIFIBATIDE - UNKNOWN - UNIT DOSE : UNKNOWN [Suspect]
     Indication: CHEST PAIN
     Dates: start: 20021002, end: 20021002
  5. INTERGRILIN - EPTIFIBATIDE - UNKNOWN - UNIT DOSE : UNKNOWN [Suspect]
     Indication: CORONARY ANGIOPLASTY
     Dates: start: 20021002, end: 20021002
  6. INTERGRILIN - EPTIFIBATIDE - UNKNOWN - UNIT DOSE : UNKNOWN [Suspect]
     Indication: CORONARY ARTERY DISEASE
     Dates: start: 20021002, end: 20021002
  7. NIFEDIPINE [Concomitant]
  8. LISINOPRIL [Concomitant]
  9. FUROSEMIDE [Concomitant]
  10. ISOSORBIDE MONONITRATE [Concomitant]
  11. ACETYLSALICYLIC ACID SRT [Concomitant]
  12. CARVEDILOL [Concomitant]
  13. RABEPRAZOLE SODIUM [Concomitant]
  14. IMATINIB MESILATE [Concomitant]
  15. ST15718 ( 9TI871/CGP57148B T35/17+CAPS) [Concomitant]

REACTIONS (1)
  - RECTAL HAEMORRHAGE [None]
